FAERS Safety Report 7109364-1 (Version None)
Quarter: 2010Q4

REPORT INFORMATION
  Report Type: 
  Country: None (occurrence: None)
  Receive Date: 20101118
  Receipt Date: 20101109
  Transmission Date: 20110411
  Serious: Yes (Death)
  Sender: FDA-Public Use
  Company Number: US-BIOGENIDEC-2010BI033837

PATIENT
  Age: 59 Year
  Sex: Female

DRUGS (2)
  1. AVONEX [Suspect]
     Indication: MULTIPLE SCLEROSIS
     Route: 030
     Dates: start: 20030710, end: 20071208
  2. AVONEX [Suspect]
     Route: 030
     Dates: start: 20090701, end: 20100401

REACTIONS (2)
  - COMA [None]
  - PNEUMONIA [None]
